FAERS Safety Report 8805926 (Version 2)
Quarter: 2013Q1

REPORT INFORMATION
  Report Type: Spontaneous
  Country: DE (occurrence: None)
  Receive Date: 20120918
  Receipt Date: 20121211
  Transmission Date: 20140127
  Serious: Yes (Life-Threatening, Hospitalization)
  Sender: FDA-Public Use
  Company Number: 2012-0796

PATIENT
  Age: 70 Year
  Sex: Female
  Weight: 63 kg

DRUGS (22)
  1. CARFILZOMIB [Suspect]
     Indication: PLASMA CELL MYELOMA
     Dosage: 9.1429 MG (32 MG, DAYS 1, 2), INTRAVENOUS
     Route: 042
     Dates: start: 20120822, end: 20120823
  2. BISOPROLOL(BISOPROLOL) (BISOPROLOL) [Concomitant]
  3. JURNISTA (HYDROMORPHONE HYDROCHLORIDE) (HYDROMORPHONE HYDROCHLORIDE) [Concomitant]
  4. MOXONIDIN (MOXONIDINE) (MOXONIDINE) [Concomitant]
  5. RAMIPRIL(RAMIPRIL) (RAMIPRIL) [Concomitant]
  6. DOXAZOSIN(DOXAZOSIN) (DOXAZOSIN) [Concomitant]
  7. PANTOZOL (PANTOPRAZOLE SODIUM SESQUIHYDRATE) (PANTOPRAZOLE SODIUM SESQUIHYDRATE) [Concomitant]
  8. DIGITOXIN(DIGITOXIN) (DIGITOXIN) [Concomitant]
  9. BLOPRESS (CANDESARTAN CILEXETIL) (CANDESARTAN CILEXETIL) [Concomitant]
  10. KREON (PANCREATIN) (PANCREATIN) [Concomitant]
  11. STANGYL (TRIMIPRAMINE MALEATE) (TRIMIPRAMINE MALEATE) [Concomitant]
  12. TREVILOR (VENLAFAXINE HYDROCHLORIDE) (VENLAFAXINE HYDROCHLORIDE) [Concomitant]
  13. ACTRAPID (INSULIN HUMAN) (INSULIN HUMAN) [Concomitant]
  14. LANTUS (INSULIN GLARGINE) (INSULIN GLARGINE) [Concomitant]
  15. NEPRESOL (DIHYDRALAZINE SULFATE) (DIHYDRALAZINE SULFATE) [Concomitant]
  16. PENTALONG (PENTAERITHRITYL TETRANITRATE) (PENTAERITHRITYL TETRANITRATE) [Concomitant]
  17. SPIRONOLACTON (SPIRONOLACTONE) (SPIRONOLACTONE) [Concomitant]
  18. TOREM (TORASEMIDE) (TORASEMIDE) [Concomitant]
  19. XIPAMID (XIPAMIDE) (XIPAMIDE) [Concomitant]
  20. DEXAMETHASONE(DEXAMETHASONE) (DEXAMETHASONE) [Concomitant]
  21. ALLOPURINOL(ALLOPURINOL) (ALLOPURINOL) [Concomitant]
  22. CIPROFLOXACIN(CIPROFLOXACIN) (CIPROFLOXACIN) [Concomitant]

REACTIONS (8)
  - Dyspnoea [None]
  - Hyperkalaemia [None]
  - Hypocalcaemia [None]
  - Blood pressure decreased [None]
  - Atrioventricular block complete [None]
  - Bradycardia [None]
  - Dizziness [None]
  - Renal injury [None]
